FAERS Safety Report 21050372 (Version 1)
Quarter: 2022Q3

REPORT INFORMATION
  Report Type: Spontaneous
  Country: US (occurrence: US)
  Receive Date: 20220707
  Receipt Date: 20220707
  Transmission Date: 20221027
  Serious: No
  Sender: FDA-Public Use
  Company Number: US-CIPLA LTD.-2022US03939

PATIENT
  Sex: Male

DRUGS (1)
  1. DIMETHYL FUMARATE [Suspect]
     Active Substance: DIMETHYL FUMARATE
     Indication: Product used for unknown indication
     Dosage: UNK
     Route: 065

REACTIONS (5)
  - Ear discomfort [Unknown]
  - Adverse drug reaction [Unknown]
  - Cerebral disorder [Unknown]
  - Salivary hypersecretion [Unknown]
  - Rhinorrhoea [Unknown]
